FAERS Safety Report 12743041 (Version 1)
Quarter: 2016Q3

REPORT INFORMATION
  Report Type: Spontaneous
  Country: US (occurrence: US)
  Receive Date: 20160914
  Receipt Date: 20160914
  Transmission Date: 20161109
  Serious: No
  Sender: FDA-Public Use
  Company Number: US-SIGMA-TAU US-2016STPI000118

PATIENT
  Age: 39 Year
  Sex: Female

DRUGS (1)
  1. MATULANE [Suspect]
     Active Substance: PROCARBAZINE HYDROCHLORIDE
     Indication: BREAST CANCER FEMALE
     Dosage: 100 MG FOR 12 DAYS AND 50MG FOR 2 DAYS
     Route: 048
     Dates: start: 20150707

REACTIONS (4)
  - Fatigue [Unknown]
  - Nausea [Unknown]
  - Rash [Unknown]
  - Abdominal pain [Unknown]

NARRATIVE: CASE EVENT DATE: 201507
